FAERS Safety Report 7782779-4 (Version None)
Quarter: 2011Q3

REPORT INFORMATION
  Report Type: 
  Country: None (occurrence: None)
  Receive Date: 20110928
  Receipt Date: 20110921
  Transmission Date: 20111222
  Serious: Yes (Other)
  Sender: FDA-Public Use
  Company Number: FR-PFIZER INC-2011190772

PATIENT
  Age: 78 Year
  Sex: Female

DRUGS (7)
  1. CORDARONE [Concomitant]
     Dosage: 1 TABLET A DAY
  2. TRACLEER [Concomitant]
     Indication: HYPERTENSION
     Dosage: 125 MG, 2X/DAY
     Dates: start: 20100303
  3. REVATIO [Suspect]
     Dosage: 20 MG, 2X/DAY
  4. PREVISCAN [Concomitant]
     Dosage: UNK
     Dates: start: 20100601
  5. LASIX [Concomitant]
     Dosage: 20 MG, 2X/DAY
  6. REVATIO [Suspect]
     Dosage: 20 MG, 3X/DAY
  7. REVATIO [Suspect]
     Indication: PULMONARY ARTERIAL HYPERTENSION
     Dosage: 20 MG, 1X/DAY
     Dates: start: 20110713

REACTIONS (4)
  - TRANSPLANT REJECTION [None]
  - VISUAL ACUITY REDUCED [None]
  - VISUAL IMPAIRMENT [None]
  - VISION BLURRED [None]
